FAERS Safety Report 14947317 (Version 1)
Quarter: 2018Q2

REPORT INFORMATION
  Report Type: Spontaneous
  Country: US (occurrence: US)
  Receive Date: 20180529
  Receipt Date: 20180529
  Transmission Date: 20180711
  Serious: Yes (Hospitalization, Other)
  Sender: FDA-Public Use
  Company Number: US-PFIZER INC-2018213697

PATIENT
  Age: 74 Year
  Sex: Female

DRUGS (2)
  1. PROTONIX [Suspect]
     Active Substance: PANTOPRAZOLE SODIUM
     Dosage: UNK
     Dates: start: 20180518
  2. TIKOSYN [Interacting]
     Active Substance: DOFETILIDE
     Indication: ATRIAL FIBRILLATION
     Dosage: 0.5 MG, 2X/DAY
     Dates: start: 2018

REACTIONS (4)
  - Dyspnoea [Unknown]
  - Atrial fibrillation [Unknown]
  - Drug interaction [Unknown]
  - Cardiac flutter [Unknown]

NARRATIVE: CASE EVENT DATE: 201805
